FAERS Safety Report 16374864 (Version 2)
Quarter: 2019Q2

REPORT INFORMATION
  Report Type: Spontaneous
  Country: US (occurrence: US)
  Receive Date: 20190530
  Receipt Date: 20190605
  Transmission Date: 20190711
  Serious: Yes (Hospitalization, Disabling, Other)
  Sender: FDA-Public Use
  Company Number: US-AMGEN-USASP2019082223

PATIENT
  Age: 49 Year
  Sex: Female

DRUGS (2)
  1. METHOTREXATE. [Concomitant]
     Active Substance: METHOTREXATE
     Indication: RHEUMATOID ARTHRITIS
  2. ENBREL [Suspect]
     Active Substance: ETANERCEPT
     Indication: RHEUMATOID ARTHRITIS
     Dosage: 50 MILLIGRAM, QWK
     Route: 065

REACTIONS (14)
  - Peripheral swelling [Recovering/Resolving]
  - Product storage error [Unknown]
  - Blood pressure decreased [Recovering/Resolving]
  - Bedridden [Unknown]
  - Spinal fracture [Recovering/Resolving]
  - Dyspnoea [Not Recovered/Not Resolved]
  - Gastric ulcer [Recovering/Resolving]
  - Fall [Unknown]
  - Benign neoplasm [Recovering/Resolving]
  - Systemic lupus erythematosus [Recovering/Resolving]
  - Sinusitis bacterial [Not Recovered/Not Resolved]
  - Coma [Recovering/Resolving]
  - Hip fracture [Recovering/Resolving]
  - Haemorrhage [Unknown]

NARRATIVE: CASE EVENT DATE: 2018
